FAERS Safety Report 22969339 (Version 2)
Quarter: 2023Q4

REPORT INFORMATION
  Report Type: Spontaneous
  Country: US (occurrence: US)
  Receive Date: 20230922
  Receipt Date: 20231103
  Transmission Date: 20240110
  Serious: No
  Sender: FDA-Public Use
  Company Number: US-JNJFOC-20230939019

PATIENT
  Age: 55 Year
  Sex: Female

DRUGS (8)
  1. TREMFYA [Suspect]
     Active Substance: GUSELKUMAB
     Indication: Psoriatic arthropathy
     Route: 065
     Dates: start: 20230813
  2. TREMFYA [Suspect]
     Active Substance: GUSELKUMAB
     Route: 065
     Dates: start: 20230813
  3. CIPRO [Concomitant]
     Active Substance: CIPROFLOXACIN HYDROCHLORIDE
  4. FERROUS SULFATE [Concomitant]
     Active Substance: FERROUS SULFATE
  5. VALACYCLOVIR [Concomitant]
     Active Substance: VALACYCLOVIR HYDROCHLORIDE
  6. PREDNISONE [Concomitant]
     Active Substance: PREDNISONE
  7. IBUPROFEN [Concomitant]
     Active Substance: IBUPROFEN
  8. ERGOCALCIFEROL [Concomitant]
     Active Substance: ERGOCALCIFEROL

REACTIONS (5)
  - Drug delivery system malfunction [Unknown]
  - Device malfunction [Unknown]
  - Product complaint [Unknown]
  - Product label issue [Unknown]
  - Product dose omission issue [Unknown]

NARRATIVE: CASE EVENT DATE: 20230917
